FAERS Safety Report 17867176 (Version 2)
Quarter: 2020Q2

REPORT INFORMATION
  Report Type: Report from Study
  Country: KR (occurrence: KR)
  Receive Date: 20200605
  Receipt Date: 20200610
  Transmission Date: 20200714
  Serious: Yes (Death, Hospitalization)
  Sender: FDA-Public Use
  Company Number: KR-ROCHE-2611644

PATIENT
  Age: 71 Year
  Sex: Male
  Weight: 67 kg

DRUGS (6)
  1. LEVOKACIN [Concomitant]
     Route: 065
     Dates: start: 20200511, end: 20200518
  2. ATEZOLIZUMAB. [Suspect]
     Active Substance: ATEZOLIZUMAB
     Indication: NON-SMALL CELL LUNG CANCER
     Dosage: ON 18/MAR/2020, HE RECEIVED THE MOST RECENT DOSE OF PRIOR TO EVENT ONSET
     Route: 042
     Dates: start: 20200318
  3. MACPERAN [Concomitant]
     Active Substance: METOCLOPRAMIDE HYDROCHLORIDE
     Route: 065
     Dates: start: 20200511, end: 20200518
  4. VANCOMYCIN [Concomitant]
     Active Substance: VANCOMYCIN
     Dosage: 3G/BTL
     Route: 065
     Dates: start: 20200331, end: 20200607
  5. GASTIIN CR [Concomitant]
     Route: 065
     Dates: start: 20200504
  6. SULFOLASE [Concomitant]
     Route: 065
     Dates: start: 20200504

REACTIONS (1)
  - Pneumonia [Fatal]

NARRATIVE: CASE EVENT DATE: 20200518
